FAERS Safety Report 21608529 (Version 2)
Quarter: 2023Q1

REPORT INFORMATION
  Report Type: Spontaneous
  Country: US (occurrence: US)
  Receive Date: 20221117
  Receipt Date: 20230301
  Transmission Date: 20230418
  Serious: Yes (Death, Hospitalization)
  Sender: FDA-Public Use
  Company Number: US-JNJFOC-20221137737

PATIENT
  Age: 67 Year
  Sex: Male
  Weight: 32.5 kg

DRUGS (1)
  1. OPSUMIT [Suspect]
     Active Substance: MACITENTAN
     Indication: Product used for unknown indication
     Route: 048

REACTIONS (3)
  - Severe acute respiratory syndrome [Fatal]
  - COVID-19 [Fatal]
  - Hospitalisation [Unknown]

NARRATIVE: CASE EVENT DATE: 20221025
